FAERS Safety Report 12391506 (Version 2)
Quarter: 2016Q3

REPORT INFORMATION
  Report Type: Report from Study
  Country: US (occurrence: US)
  Receive Date: 20160521
  Receipt Date: 20160702
  Transmission Date: 20161109
  Serious: Yes (Hospitalization, Other)
  Sender: FDA-Public Use
  Company Number: US-ACCORD-040754

PATIENT
  Age: 4 Year
  Sex: Male

DRUGS (5)
  1. CISPLATIN. [Suspect]
     Active Substance: CISPLATIN
     Indication: NEUROBLASTOMA
  2. ETOPOSIDE. [Suspect]
     Active Substance: ETOPOSIDE
     Indication: NEUROBLASTOMA
  3. CARBOPLATIN. [Concomitant]
     Active Substance: CARBOPLATIN
  4. MELPHALAN [Concomitant]
     Active Substance: MELPHALAN
  5. CEFEPIME [Concomitant]
     Active Substance: CEFEPIME HYDROCHLORIDE

REACTIONS (3)
  - Fungal skin infection [Recovered/Resolved]
  - Off label use [Unknown]
  - Neutropenia [Recovered/Resolved]
